FAERS Safety Report 12548634 (Version 1)
Quarter: 2016Q3

REPORT INFORMATION
  Report Type: Spontaneous
  Country: US (occurrence: US)
  Receive Date: 20160712
  Receipt Date: 20160712
  Transmission Date: 20161109
  Serious: Yes (Hospitalization)
  Sender: FDA-Public Use
  Company Number: US-TEVA-606375USA

PATIENT
  Sex: Female
  Weight: 52.21 kg

DRUGS (2)
  1. HALDOL [Concomitant]
     Active Substance: HALOPERIDOL
  2. LAMOTRIGINE. [Suspect]
     Active Substance: LAMOTRIGINE
     Indication: SLEEP DISORDER

REACTIONS (8)
  - Weight decreased [Unknown]
  - Confusional state [Unknown]
  - Wrong technique in product usage process [Unknown]
  - Product use issue [Unknown]
  - Headache [Unknown]
  - Pyrexia [Unknown]
  - Hospitalisation [Unknown]
  - Rash [Unknown]
